FAERS Safety Report 8434063-3 (Version None)
Quarter: 2012Q2

REPORT INFORMATION
  Report Type: 
  Country: None (occurrence: None)
  Receive Date: 20120613
  Receipt Date: 20120606
  Transmission Date: 20120825
  Serious: Yes (Hospitalization)
  Sender: FDA-Public Use
  Company Number: US-UCBSA-057572

PATIENT
  Age: 83 Year
  Sex: Male
  Weight: 95.2 kg

DRUGS (9)
  1. CIMZIA [Suspect]
     Dosage: NO OF DOSES RECEIVED-16
     Route: 058
     Dates: start: 20111005, end: 20120516
  2. TERAZOSIN HCL [Concomitant]
     Indication: PROSTATOMEGALY
     Dosage: AT BEDTIME
     Route: 048
     Dates: start: 20090101
  3. RANITIDINE [Concomitant]
     Indication: ANTACID THERAPY
     Route: 048
     Dates: start: 20090101
  4. ANDRODERM [Concomitant]
     Indication: BLOOD TESTOSTERONE
     Route: 061
     Dates: start: 20090101
  5. METHOTREXATE [Concomitant]
     Indication: RHEUMATOID ARTHRITIS
     Route: 048
     Dates: start: 20100316
  6. WARFARIN SODIUM [Concomitant]
     Indication: ANTICOAGULANT THERAPY
     Route: 048
     Dates: start: 20090101
  7. ALENDRONATE SODIUM [Concomitant]
     Indication: OSTEOPOROSIS
     Route: 048
     Dates: start: 20110713
  8. MULTI-VITAMIN WITH VIT D [Concomitant]
     Indication: MEDICAL DIET
     Route: 048
     Dates: start: 20090101
  9. ACTIVON [Concomitant]
     Indication: RHEUMATOID ARTHRITIS
     Route: 061
     Dates: start: 20090101

REACTIONS (1)
  - LOBAR PNEUMONIA [None]
